FAERS Safety Report 12620203 (Version 2)
Quarter: 2016Q3

REPORT INFORMATION
  Report Type: Spontaneous
  Country: DE (occurrence: DE)
  Receive Date: 20160803
  Receipt Date: 20160926
  Transmission Date: 20161109
  Serious: Yes (Life-Threatening, Hospitalization)
  Sender: FDA-Public Use
  Company Number: DE-ALLERGAN-1664627US

PATIENT
  Age: 81 Year
  Sex: Male

DRUGS (1)
  1. BOTOX [Suspect]
     Active Substance: ONABOTULINUMTOXINA
     Indication: OESOPHAGEAL ACHALASIA
     Dosage: 100 UNITS, SINGLE
     Route: 030
     Dates: start: 20160719, end: 20160719

REACTIONS (2)
  - Off label use [Unknown]
  - Mediastinitis [Not Recovered/Not Resolved]

NARRATIVE: CASE EVENT DATE: 20160724
